FAERS Safety Report 15164101 (Version 1)
Quarter: 2018Q3

REPORT INFORMATION
  Report Type: Spontaneous
  Country: CH (occurrence: CH)
  Receive Date: 20180719
  Receipt Date: 20180719
  Transmission Date: 20181010
  Serious: Yes (Other)
  Sender: FDA-Public Use
  Company Number: CH-LUPIN PHARMACEUTICALS INC.-2018-04971

PATIENT
  Age: 7 Year
  Sex: Female

DRUGS (3)
  1. CEFPROZIL. [Suspect]
     Active Substance: CEFPROZIL
     Dosage: INITIAL DIAGNOSTIC DRUG PROVATION TEST (23 MG/KG)
     Route: 065
  2. CEFPROZIL. [Suspect]
     Active Substance: CEFPROZIL
     Indication: PRODUCT USED FOR UNKNOWN INDICATION
     Dosage: UNK
     Route: 065
  3. CEFPROZIL. [Suspect]
     Active Substance: CEFPROZIL
     Dosage: FOLLOW?UP DRUG PROVATION TEST (30 MG/KG/DAY)
     Route: 065

REACTIONS (1)
  - Rash maculo-papular [Recovered/Resolved]
